FAERS Safety Report 14615230 (Version 1)
Quarter: 2018Q1

REPORT INFORMATION
  Report Type: Spontaneous
  Country: US (occurrence: US)
  Receive Date: 20180308
  Receipt Date: 20180308
  Transmission Date: 20180509
  Serious: No
  Sender: FDA-Public Use
  Company Number: US-ACTELION-A-NJ2018-168479

PATIENT
  Age: 4 Year
  Sex: Male

DRUGS (1)
  1. TRACLEER [Suspect]
     Active Substance: BOSENTAN
     Indication: PULMONARY ARTERIAL HYPERTENSION
     Dosage: 1 TABLET (62.5 MG) IN 10 ML OF WATER AND TAKES 4 ML (25MG) BID
     Route: 048
     Dates: start: 20171206, end: 20180219

REACTIONS (2)
  - Drug dose omission [Unknown]
  - Cyanosis [Unknown]

NARRATIVE: CASE EVENT DATE: 20180223
